FAERS Safety Report 19460885 (Version 1)
Quarter: 2021Q2

REPORT INFORMATION
  Report Type: Spontaneous
  Country: JP (occurrence: JP)
  Receive Date: 20210625
  Receipt Date: 20210625
  Transmission Date: 20210717
  Serious: Yes (Other)
  Sender: FDA-Public Use
  Company Number: NVSJ2021JP009174

PATIENT

DRUGS (1)
  1. NEORAL [Suspect]
     Active Substance: CYCLOSPORINE
     Indication: NEUROMYELITIS OPTICA SPECTRUM DISORDER
     Dosage: 5 MG/KG
     Route: 048

REACTIONS (3)
  - Neuromyelitis optica spectrum disorder [Unknown]
  - Product use in unapproved indication [Unknown]
  - Immunosuppressant drug level decreased [Unknown]
